FAERS Safety Report 13389129 (Version 1)
Quarter: 2017Q1

REPORT INFORMATION
  Report Type: Spontaneous
  Country: US (occurrence: US)
  Receive Date: 20170330
  Receipt Date: 20170330
  Transmission Date: 20170429
  Serious: Yes (Other)
  Sender: FDA-Public Use
  Company Number: US-PFIZER INC-2017134490

PATIENT

DRUGS (1)
  1. DICLOFENAC SODIUM. [Suspect]
     Active Substance: DICLOFENAC SODIUM
     Indication: PHARYNGITIS STREPTOCOCCAL
     Dosage: UNK
     Route: 030

REACTIONS (2)
  - Muscle necrosis [Unknown]
  - Embolia cutis medicamentosa [Unknown]
